FAERS Safety Report 9595266 (Version 2)
Quarter: 2013Q4

REPORT INFORMATION
  Report Type: Spontaneous
  Country: US (occurrence: US)
  Receive Date: 20131004
  Receipt Date: 20131004
  Transmission Date: 20140711
  Serious: No
  Sender: FDA-Public Use
  Company Number: US-PURDUE-USA-2012-0091873

PATIENT
  Age: 59 Year
  Sex: Female
  Weight: 120.18 kg

DRUGS (10)
  1. BUTRANS [Suspect]
     Indication: INTERVERTEBRAL DISC PROTRUSION
     Dosage: 20 MCG, 1/WEEK
     Route: 062
     Dates: start: 20120508
  2. BUTRANS [Suspect]
     Indication: PAIN
  3. MIRTAZAPINE [Concomitant]
     Indication: PRODUCT USED FOR UNKNOWN INDICATION
     Dosage: 30 MG, UNK
  4. LIPITOR [Concomitant]
     Indication: PRODUCT USED FOR UNKNOWN INDICATION
     Dosage: 20 MG, UNK
  5. TEMAZEPAM [Concomitant]
     Indication: PRODUCT USED FOR UNKNOWN INDICATION
     Dosage: 30 MG, UNK
  6. HYDROCHLOROTHIAZIDE [Concomitant]
     Indication: PRODUCT USED FOR UNKNOWN INDICATION
     Dosage: 25 MG, UNK
  7. CAPTOPRIL [Concomitant]
     Indication: PRODUCT USED FOR UNKNOWN INDICATION
     Dosage: 25 MG, UNK
  8. LEVOTHYROXINE [Concomitant]
     Indication: PRODUCT USED FOR UNKNOWN INDICATION
     Dosage: 25 MG, UNK
  9. NUCYNTA [Concomitant]
     Indication: PRODUCT USED FOR UNKNOWN INDICATION
     Dosage: 100 MG, UNK
  10. MELOXICAM [Concomitant]
     Indication: PRODUCT USED FOR UNKNOWN INDICATION
     Dosage: 15 MG, UNK

REACTIONS (7)
  - Application site discolouration [Not Recovered/Not Resolved]
  - Application site burn [Not Recovered/Not Resolved]
  - Wrong technique in drug usage process [Unknown]
  - Application site erythema [Not Recovered/Not Resolved]
  - Application site warmth [Not Recovered/Not Resolved]
  - Application site rash [Not Recovered/Not Resolved]
  - Application site perspiration [Not Recovered/Not Resolved]
